FAERS Safety Report 5881631-9 (Version None)
Quarter: 2008Q3

REPORT INFORMATION
  Report Type: 
  Country: None (occurrence: None)
  Receive Date: 20080912
  Receipt Date: 20080708
  Transmission Date: 20090109
  Serious: No
  Sender: FDA-Public Use
  Company Number: US-ABBOTT-08P-163-0461334-00

PATIENT
  Age: 9 Year
  Sex: Female

DRUGS (1)
  1. HUMIRA [Suspect]
     Indication: DRUG USE FOR UNKNOWN INDICATION

REACTIONS (5)
  - BODY TEMPERATURE INCREASED [None]
  - DRUG DOSE OMISSION [None]
  - FATIGUE [None]
  - JOINT SWELLING [None]
  - PALLOR [None]
